FAERS Safety Report 9848421 (Version 1)
Quarter: 2014Q1

REPORT INFORMATION
  Report Type: Report from Study
  Country: CA (occurrence: CA)
  Receive Date: 20140128
  Receipt Date: 20140128
  Transmission Date: 20141002
  Serious: Yes (Death)
  Sender: FDA-Public Use
  Company Number: CA-ROCHE-1338469

PATIENT
  Sex: Female

DRUGS (4)
  1. ACTEMRA [Suspect]
     Indication: RHEUMATOID ARTHRITIS
     Route: 042
     Dates: start: 20130821, end: 20131030
  2. PREDNISONE [Concomitant]
  3. DOMPERIDONE [Concomitant]
  4. FESO4 [Concomitant]

REACTIONS (1)
  - Death [Fatal]
